FAERS Safety Report 16892092 (Version 2)
Quarter: 2019Q4

REPORT INFORMATION
  Report Type: Spontaneous
  Country: US (occurrence: US)
  Receive Date: 20191007
  Receipt Date: 20191216
  Transmission Date: 20200122
  Serious: No
  Sender: FDA-Public Use
  Company Number: US-AMAG PHARMACEUTICALS, INC.-AMAG201904988

PATIENT
  Age: 37 Year
  Sex: Female
  Weight: 74 kg

DRUGS (2)
  1. VITAFOL ULTRA (PRENATAL VITAMINS) [Concomitant]
     Indication: PREGNANCY
     Dosage: 29 MG IRON-1MG-200MG ORAL CAPSULE DAILY
     Route: 048
     Dates: start: 20190606
  2. MAKENA [Suspect]
     Active Substance: HYDROXYPROGESTERONE CAPROATE
     Indication: PREMATURE DELIVERY
     Dosage: 275MG/1.1ML
     Route: 058
     Dates: start: 20190731, end: 20191204

REACTIONS (1)
  - Blood glucose abnormal [Unknown]

NARRATIVE: CASE EVENT DATE: 20190909
